FAERS Safety Report 5736890-X (Version None)
Quarter: 2008Q2

REPORT INFORMATION
  Report Type: 
  Country: None (occurrence: None)
  Receive Date: 20080509
  Receipt Date: 20080426
  Transmission Date: 20081010
  Serious: Yes (Hospitalization)
  Sender: FDA-Public Use
  Company Number: 2008S1007542

PATIENT
  Age: 28 Year
  Sex: Male

DRUGS (1)
  1. MERCAPTAMINE BITARTRATE (MERCAPTAMINE BITARTRATE) [Suspect]
     Indication: CYSTINOSIS

REACTIONS (2)
  - ACUTE CORONARY SYNDROME [None]
  - ARTERIOSPASM CORONARY [None]
